FAERS Safety Report 14580760 (Version 1)
Quarter: 2018Q1

REPORT INFORMATION
  Report Type: Spontaneous
  Country: FR (occurrence: FR)
  Receive Date: 20180228
  Receipt Date: 20180228
  Transmission Date: 20180509
  Serious: Yes (Other)
  Sender: FDA-Public Use
  Company Number: FR-MERCK KGAA-2042692

PATIENT
  Sex: Female

DRUGS (1)
  1. NOVOTHYROX [Suspect]
     Active Substance: LEVOTHYROXINE SODIUM
     Indication: HYPOTHYROIDISM

REACTIONS (6)
  - Discomfort [None]
  - Fatigue [Not Recovered/Not Resolved]
  - Adverse event [Recovered/Resolved]
  - Myalgia [None]
  - Loss of personal independence in daily activities [Recovered/Resolved]
  - Insomnia [Recovering/Resolving]
